FAERS Safety Report 16286642 (Version 1)
Quarter: 2019Q2

REPORT INFORMATION
  Report Type: Spontaneous
  Country: US (occurrence: US)
  Receive Date: 20190507
  Receipt Date: 20190507
  Transmission Date: 20190711
  Serious: No
  Sender: FDA-Public Use
  Company Number: None

PATIENT
  Sex: Female

DRUGS (2)
  1. SKYLA [Suspect]
     Active Substance: LEVONORGESTREL
  2. LEVOMEFOLATE CALCUIM TABLETS [Suspect]
     Active Substance: LEVOMEFOLATE CALCIUM

REACTIONS (3)
  - Acne [None]
  - Metrorrhagia [None]
  - Complication associated with device [None]
